FAERS Safety Report 8931956 (Version 1)
Quarter: 2012Q4

REPORT INFORMATION
  Report Type: 
  Country: US (occurrence: US)
  Receive Date: 20121128
  Receipt Date: 20121128
  Transmission Date: 20130627
  Serious: No
  Sender: FDA-Public Use
  Company Number: US-MYLANLABS-2012S1000021

PATIENT
  Age: 79 Year
  Sex: Female

DRUGS (1)
  1. CLONIDINE [Suspect]

REACTIONS (1)
  - Arthralgia [Recovered/Resolved]
